FAERS Safety Report 17926101 (Version 5)
Quarter: 2020Q3

REPORT INFORMATION
  Report Type: Report from Study
  Country: JP (occurrence: JP)
  Receive Date: 20200622
  Receipt Date: 20200712
  Transmission Date: 20201103
  Serious: Yes (Death, Other)
  Sender: FDA-Public Use
  Company Number: JP-BRISTOL-MYERS SQUIBB COMPANY-BMS-2020-049397

PATIENT
  Age: 67 Year
  Sex: Female
  Weight: 57.5 kg

DRUGS (15)
  1. CALONAL [Concomitant]
     Active Substance: ACETAMINOPHEN
     Dosage: 1200 MILLIGRAM, QD
     Route: 065
     Dates: start: 20200615, end: 20200615
  2. MAGMITT [Concomitant]
     Active Substance: MAGNESIUM OXIDE
     Indication: CONSTIPATION
     Dosage: 330 MG, Q8H
     Route: 048
     Dates: start: 20200610, end: 20200611
  3. REBAMIPIDE [Concomitant]
     Active Substance: REBAMIPIDE
     Indication: PROPHYLAXIS AGAINST GASTROINTESTINAL ULCER
     Dosage: 100 MG, Q8H
     Route: 048
     Dates: start: 20200617, end: 20200618
  4. FEBURIC [Concomitant]
     Active Substance: FEBUXOSTAT
     Indication: PROPHYLAXIS
     Dosage: 40 MILLIGRAM, QD
     Route: 065
  5. FLUCONAZOLE. [Concomitant]
     Active Substance: FLUCONAZOLE
     Indication: INFECTION PROPHYLAXIS
     Dosage: 100 MG, EVERYDAY
     Route: 048
     Dates: start: 2020, end: 20200618
  6. LOXOPROFEN [Concomitant]
     Active Substance: LOXOPROFEN
     Indication: ADULT T-CELL LYMPHOMA/LEUKAEMIA
     Dosage: 60 MG, Q8H
     Route: 048
     Dates: start: 20200617, end: 20200618
  7. NIVOLUMAB [Suspect]
     Active Substance: NIVOLUMAB
     Indication: ADULT T-CELL LYMPHOMA/LEUKAEMIA
     Dosage: 3 MILLIGRAM/KILOGRAM, Q2WK
     Route: 041
     Dates: start: 20200612
  8. SAMTIREL [Concomitant]
     Active Substance: ATOVAQUONE
     Indication: PROPHYLAXIS
     Dosage: 750 MG, EVERYDAY,SOLUTION (EXCEPT SYRUP)
     Route: 048
     Dates: start: 2020, end: 20200618
  9. CALONAL [Concomitant]
     Active Substance: ACETAMINOPHEN
     Indication: PYREXIA
     Dosage: 800 MILLIGRAM, QD
     Route: 065
     Dates: start: 20200613, end: 20200614
  10. FEBURIC [Concomitant]
     Active Substance: FEBUXOSTAT
     Indication: HYPERURICAEMIA
     Dosage: 10 MG, EVERYDAY
     Route: 048
     Dates: start: 20200615, end: 20200618
  11. CALONAL [Concomitant]
     Active Substance: ACETAMINOPHEN
     Dosage: 800 MILLIGRAM, QD
     Route: 065
     Dates: start: 20200616, end: 20200616
  12. BFLUID [Concomitant]
     Active Substance: AMINO ACIDS\DEXTROSE\ELECTROLYTES NOS\VITAMINS
     Indication: DECREASED APPETITE
     Dosage: 500 MILLILITER
     Dates: start: 20200617
  13. K?SUPPLY [Concomitant]
     Active Substance: POTASSIUM CHLORIDE
     Indication: HYPOKALAEMIA
     Dosage: 1200 MILLIGRAM, Q12H
     Route: 048
     Dates: start: 20200617, end: 20200618
  14. SAXIZON [Concomitant]
     Active Substance: HYDROCORTISONE SODIUM SUCCINATE
     Indication: PYREXIA
     Dosage: 100 MILLIGRAM, QD
     Route: 065
     Dates: start: 20200612
  15. CALONAL [Concomitant]
     Active Substance: ACETAMINOPHEN
     Dosage: 400 MILLIGRAM, QD
     Route: 065
     Dates: start: 20200617

REACTIONS (1)
  - Disseminated intravascular coagulation [Fatal]

NARRATIVE: CASE EVENT DATE: 20200619
